FAERS Safety Report 17094755 (Version 5)
Quarter: 2020Q1

REPORT INFORMATION
  Report Type: Spontaneous
  Country: CZ (occurrence: CZ)
  Receive Date: 20191130
  Receipt Date: 20200117
  Transmission Date: 20200409
  Serious: Yes (Hospitalization, Other)
  Sender: FDA-Public Use
  Company Number: CZ-AUROBINDO-AUR-APL-2019-075426

PATIENT
  Age: 66 Year
  Sex: Female

DRUGS (20)
  1. METFORMIN FILM-COATED TABLET [Suspect]
     Active Substance: METFORMIN HYDROCHLORIDE
     Indication: TYPE 2 DIABETES MELLITUS
     Dosage: UNK
     Route: 048
  2. PREGABALINE [Suspect]
     Active Substance: PREGABALIN
     Dosage: 300 MILLIGRAM, ONCE A DAY
     Route: 065
  3. ATORVASTATIN FILM-COATED TABLETS [Suspect]
     Active Substance: ATORVASTATIN
     Indication: TYPE 2 DIABETES MELLITUS
     Dosage: 20 MILLIGRAM, ONCE A DAY
     Route: 048
  4. VILDAGLIPTIN [Suspect]
     Active Substance: VILDAGLIPTIN
     Indication: PRODUCT USED FOR UNKNOWN INDICATION
     Dosage: 50 MILLIGRAM, TWO TIMES A DAY(100 MG, ONCE A DAY)
     Route: 065
  5. ATENOLOL TABLET [Suspect]
     Active Substance: ATENOLOL
     Indication: PRODUCT USED FOR UNKNOWN INDICATION
     Dosage: 50 MILLIGRAM
     Route: 065
  6. COTRIMOXAZOLE [Concomitant]
     Active Substance: SULFAMETHOXAZOLE\TRIMETHOPRIM
     Indication: PRODUCT USED FOR UNKNOWN INDICATION
     Dosage: UNK
     Route: 065
  7. PHENOBARBITAL. [Concomitant]
     Active Substance: PHENOBARBITAL
     Indication: PRODUCT USED FOR UNKNOWN INDICATION
     Dosage: UNK
     Route: 065
  8. PREGABALINE [Suspect]
     Active Substance: PREGABALIN
     Indication: TYPE 2 DIABETES MELLITUS
     Dosage: 150 MILLIGRAM, TWO TIMES A DAY (300 MG, ONCE A DAY)
     Route: 048
  9. EMPAGLIFLOZIN [Concomitant]
     Active Substance: EMPAGLIFLOZIN
     Indication: PRODUCT USED FOR UNKNOWN INDICATION
     Dosage: UNK
     Route: 065
  10. INSULIN DEGLUDEC;LIRAGLUTIDE [Concomitant]
     Indication: PRODUCT USED FOR UNKNOWN INDICATION
     Dosage: UNK
     Route: 065
  11. PIOGLITAZONE. [Concomitant]
     Active Substance: PIOGLITAZONE
     Indication: TYPE 2 DIABETES MELLITUS
     Dosage: 15 MILLIGRAM, ONCE A DAY, MORNING
     Route: 048
     Dates: start: 20190514
  12. VILDAGLIPTIN [Suspect]
     Active Substance: VILDAGLIPTIN
     Dosage: 100 MILLIGRAM, ONCE A DAY
     Route: 065
  13. REPAGLINIDE. [Suspect]
     Active Substance: REPAGLINIDE
     Indication: TYPE 2 DIABETES MELLITUS
     Dosage: UNK
     Route: 065
  14. METAMIZOLE [Concomitant]
     Active Substance: METAMIZOLE
     Indication: PRODUCT USED FOR UNKNOWN INDICATION
     Dosage: UNK
     Route: 065
  15. MAGNESIUM [Concomitant]
     Active Substance: MAGNESIUM
     Indication: MUSCLE SPASMS
     Dosage: UNK
     Route: 048
  16. INSULIN GLARGINE [Concomitant]
     Active Substance: INSULIN GLARGINE
     Indication: TYPE 2 DIABETES MELLITUS
     Dosage: 48 UNITS
     Route: 042
  17. TRAMADOL. [Suspect]
     Active Substance: TRAMADOL
     Indication: PRODUCT USED FOR UNKNOWN INDICATION
     Dosage: UNK
     Route: 065
  18. GLICLAZIDE [Concomitant]
     Active Substance: GLICLAZIDE
     Indication: TYPE 2 DIABETES MELLITUS
     Dosage: 60 MILLIGRAM, TWO TIMES A DAY, (120 MG, ONCE A DAY),60 MG (BEFORE BREAKFAST AND AT NIGHT)
     Route: 048
  19. INSULIN ASPART [Concomitant]
     Active Substance: INSULIN ASPART
     Indication: PRODUCT USED FOR UNKNOWN INDICATION
     Dosage: 22-22-18 UNITS
     Route: 065
  20. SITAGLIPTIN PHOSPHATE [Concomitant]
     Active Substance: SITAGLIPTIN PHOSPHATE
     Indication: PRODUCT USED FOR UNKNOWN INDICATION
     Dosage: UNK
     Route: 065

REACTIONS (12)
  - Muscle spasms [Unknown]
  - Neutrophilia [Unknown]
  - Arthralgia [Unknown]
  - Drug hypersensitivity [Unknown]
  - Diarrhoea [Recovered/Resolved]
  - Diabetes mellitus [Recovering/Resolving]
  - Hyperglycaemia [Recovering/Resolving]
  - Haemoglobin increased [Unknown]
  - Leukocytosis [Not Recovered/Not Resolved]
  - Drug ineffective [Unknown]
  - Dyspepsia [Recovered/Resolved]
  - Drug intolerance [Recovered/Resolved]

NARRATIVE: CASE EVENT DATE: 201604
